FAERS Safety Report 15497305 (Version 1)
Quarter: 2018Q4

REPORT INFORMATION
  Report Type: Spontaneous
  Country: ES (occurrence: ES)
  Receive Date: 20181015
  Receipt Date: 20181015
  Transmission Date: 20190205
  Serious: Yes (Other)
  Sender: FDA-Public Use
  Company Number: ES-ACCORD-073272

PATIENT
  Age: 82 Year
  Sex: Female

DRUGS (5)
  1. LOPERAMIDE [Concomitant]
     Active Substance: LOPERAMIDE
     Route: 048
  2. CALCIUM CARBONATE/COLECALCIFEROL [Concomitant]
     Route: 048
  3. CAPECITABINA ACCORD [Suspect]
     Active Substance: CAPECITABINE
     Indication: BREAST CANCER
     Dosage: 2000 - 0 -1500  14 DIAS
     Route: 048
     Dates: start: 20171130, end: 201802
  4. METOCLOPRAMIDE. [Concomitant]
     Active Substance: METOCLOPRAMIDE
  5. ENALAPRIL [Concomitant]
     Active Substance: ENALAPRIL
     Route: 048
     Dates: end: 20180209

REACTIONS (1)
  - Angioedema [Recovered/Resolved]

NARRATIVE: CASE EVENT DATE: 20180202
